FAERS Safety Report 7868995-1 (Version None)
Quarter: 2011Q4

REPORT INFORMATION
  Report Type: 
  Country: None (occurrence: None)
  Receive Date: 20111028
  Receipt Date: 20101223
  Transmission Date: 20120403
  Serious: No
  Sender: FDA-Public Use
  Company Number: US-AMGEN-USASP2010011061

PATIENT
  Age: 59 Year
  Sex: Female

DRUGS (11)
  1. LEVOTHYROXINE SODIUM [Concomitant]
     Dosage: 50 A?G, UNK
  2. MULTI-VITAMINS [Concomitant]
  3. ENBREL [Suspect]
     Indication: PRODUCT USED FOR UNKNOWN INDICATION
     Dosage: 50 MG, UNK
  4. ALLEGRA [Concomitant]
     Dosage: 30 MG, UNK
  5. LISINOPRIL [Concomitant]
     Dosage: 2.5 MG, UNK
  6. IBUPROFEN [Concomitant]
     Dosage: 200 MG, UNK
  7. FLAXSEED OIL [Concomitant]
     Dosage: 1000 MG, UNK
  8. BENADRYL [Concomitant]
     Dosage: 25 MG, UNK
  9. PRAVASTATIN [Concomitant]
     Dosage: 10 MG, UNK
  10. AMITRIPTYLINE HCL [Concomitant]
     Dosage: 25 MG, UNK
  11. FEXOFENADINE [Concomitant]
     Dosage: 30 MG, UNK

REACTIONS (2)
  - GROIN PAIN [None]
  - SKIN MASS [None]
